FAERS Safety Report 9958653 (Version 1)
Quarter: 2014Q1

REPORT INFORMATION
  Report Type: Spontaneous
  Country: US (occurrence: None)
  Receive Date: 20140228
  Receipt Date: 20140228
  Transmission Date: 20141002
  Serious: Yes (Death, Hospitalization)
  Sender: FDA-Public Use
  Company Number: 152698

PATIENT
  Age: 56 Year
  Sex: Female
  Weight: 39 kg

DRUGS (1)
  1. CISPLATIN [Suspect]
     Indication: SQUAMOUS CELL CARCINOMA

REACTIONS (9)
  - Oesophageal fistula [None]
  - Purulent pericarditis [None]
  - Hypotension [None]
  - Cardiac tamponade [None]
  - Streptococcus test positive [None]
  - Oesophageal stenosis [None]
  - Oesophageal squamous cell carcinoma recurrent [None]
  - Oesophageal squamous cell carcinoma [None]
  - Condition aggravated [None]
